FAERS Safety Report 6129777-4 (Version None)
Quarter: 2009Q1

REPORT INFORMATION
  Report Type: 
  Country: None (occurrence: None)
  Receive Date: 20090324
  Receipt Date: 20090316
  Transmission Date: 20090719
  Serious: Yes (Other)
  Sender: FDA-Public Use
  Company Number: US-JNJFOC-20090304461

PATIENT
  Age: 16 Year
  Sex: Male

DRUGS (2)
  1. TYLENOL COLD MULTI-SYMPTOM DAYTIME  COOL BURST [Suspect]
     Indication: DRUG USE FOR UNKNOWN INDICATION
     Route: 048
  2. WALGREENS COLD MEDICATION [Suspect]
     Indication: DRUG USE FOR UNKNOWN INDICATION

REACTIONS (2)
  - DYSURIA [None]
  - MULTIPLE DRUG OVERDOSE INTENTIONAL [None]
